FAERS Safety Report 14776358 (Version 1)
Quarter: 2018Q2

REPORT INFORMATION
  Report Type: Not Available
  Country: NL (occurrence: NL)
  Receive Date: 20180418
  Receipt Date: 20180418
  Transmission Date: 20180711
  Serious: Yes (Death)
  Sender: FDA-Public Use
  Company Number: NL-ANIPHARMA-2018-NL-000019

PATIENT
  Age: 87 Year
  Sex: Male

DRUGS (13)
  1. SCOPOLAMINE [Concomitant]
     Active Substance: SCOPOLAMINE
     Dosage: 20MG/ML ONCE DAILY
     Route: 042
  2. TIOTROPIUM [Concomitant]
     Active Substance: TIOTROPIUM
     Dosage: 18MCG/INHALATION DAILY
     Route: 055
  3. PREGABALIN. [Concomitant]
     Active Substance: PREGABALIN
     Dosage: 25MG FOUR TIMES DAILY
     Route: 048
     Dates: end: 20170223
  4. EPINEPHRINE. [Concomitant]
     Active Substance: EPINEPHRINE
     Dosage: 0.3MG = 0.3ML (1MG/ML) AS NEEDED
     Route: 030
  5. PANTOPRAZOLE [Concomitant]
     Active Substance: PANTOPRAZOLE
     Dosage: 40MG DAILY
     Route: 048
  6. PARACETAMOL [Concomitant]
     Active Substance: ACETAMINOPHEN
     Dosage: 500-1000MG THREE TIMES DAILY AS NEEDED
     Route: 048
     Dates: end: 20170223
  7. SILODOSIN [Concomitant]
     Active Substance: SILODOSIN
     Dosage: 8MG DAILY
     Route: 048
  8. ELIGARD [Suspect]
     Active Substance: LEUPROLIDE ACETATE
     Dosage: 45MG EVERY 6 MONTHS
     Route: 058
     Dates: start: 20170419
  9. OXYCODONE [Concomitant]
     Active Substance: OXYCODONE
     Dosage: 5-10MG DAILY
     Route: 048
  10. HYDROCHLOROTHIAZIDE. [Concomitant]
     Active Substance: HYDROCHLOROTHIAZIDE
     Dosage: 25MG DAILY
     Route: 048
  11. MORPHINE [Concomitant]
     Active Substance: MORPHINE
     Dosage: 1ML PID
     Route: 042
  12. BICALUTAMIDE. [Suspect]
     Active Substance: BICALUTAMIDE
     Indication: PROSTATE CANCER
     Dosage: UNK PER EVERY 6 MONTHS
     Route: 048
  13. CLOPIDOGREL [Concomitant]
     Active Substance: CLOPIDOGREL BISULFATE
     Dosage: 75MG DAILY
     Route: 048

REACTIONS (1)
  - Death [Fatal]
